FAERS Safety Report 10014250 (Version 1)
Quarter: 2014Q1

REPORT INFORMATION
  Report Type: Report from Study
  Country: TW (occurrence: TW)
  Receive Date: 20140317
  Receipt Date: 20140317
  Transmission Date: 20141002
  Serious: No
  Sender: FDA-Public Use
  Company Number: TW-JNJFOC-20140115858

PATIENT
  Age: 86 Year
  Sex: Male

DRUGS (8)
  1. USTEKINUMAB [Suspect]
     Indication: PSORIASIS
     Route: 058
     Dates: start: 20130806, end: 20130806
  2. USTEKINUMAB [Suspect]
     Indication: PSORIASIS
     Route: 058
     Dates: start: 20120828, end: 20120828
  3. USTEKINUMAB [Suspect]
     Indication: PSORIASIS
     Route: 058
     Dates: start: 20120718, end: 20120718
  4. ASPIRIN [Suspect]
     Indication: PSORIASIS
     Route: 058
     Dates: start: 20120828, end: 20120828
  5. ASPIRIN [Suspect]
     Indication: PSORIASIS
     Route: 058
     Dates: start: 20130806, end: 20130806
  6. ASPIRIN [Suspect]
     Indication: PSORIASIS
     Route: 058
     Dates: start: 20120718, end: 20120718
  7. FOLIC ACID [Suspect]
     Indication: PRODUCT USED FOR UNKNOWN INDICATION
     Route: 065
     Dates: start: 20120821, end: 20121015
  8. FOLIC ACID [Suspect]
     Indication: PRODUCT USED FOR UNKNOWN INDICATION
     Route: 065
     Dates: start: 20111212, end: 20120820

REACTIONS (4)
  - Cellulitis [Recovered/Resolved]
  - Blister [Not Recovered/Not Resolved]
  - Herpes zoster [Recovered/Resolved]
  - Pemphigoid [Recovered/Resolved]
